FAERS Safety Report 15014795 (Version 2)
Quarter: 2018Q3

REPORT INFORMATION
  Report Type: Spontaneous
  Country: CL (occurrence: CL)
  Receive Date: 20180615
  Receipt Date: 20180723
  Transmission Date: 20181010
  Serious: Yes (Hospitalization, Other)
  Sender: FDA-Public Use
  Company Number: PHHY2018CL019338

PATIENT
  Age: 23 Year
  Sex: Male

DRUGS (2)
  1. VOTRIENT [Suspect]
     Active Substance: PAZOPANIB HYDROCHLORIDE
     Indication: SYNOVIAL SARCOMA METASTATIC
     Route: 065
  2. DEXAMETHASONE. [Concomitant]
     Active Substance: DEXAMETHASONE
     Indication: PRODUCT USED FOR UNKNOWN INDICATION
     Dosage: 4 MG, Q8H
     Route: 065

REACTIONS (49)
  - Respiratory disorder [Unknown]
  - Ill-defined disorder [Unknown]
  - Haemoglobin increased [Unknown]
  - Hair colour changes [Unknown]
  - Peripheral swelling [Unknown]
  - Dry skin [Unknown]
  - Rash [Unknown]
  - Weight decreased [Unknown]
  - Gamma-glutamyltransferase increased [Unknown]
  - Deep vein thrombosis [Unknown]
  - Ligament pain [Unknown]
  - Tendon pain [Unknown]
  - Hair disorder [Unknown]
  - Nail disorder [Unknown]
  - Blood bilirubin increased [Unknown]
  - Joint swelling [Unknown]
  - Arthralgia [Unknown]
  - Abdominal pain upper [Unknown]
  - Asthenia [Unknown]
  - Pain in extremity [Unknown]
  - Proteinuria [Unknown]
  - Infection [Unknown]
  - Blood alkaline phosphatase increased [Unknown]
  - Second primary malignancy [Unknown]
  - Malaise [Unknown]
  - Myalgia [Unknown]
  - Wound haemorrhage [Unknown]
  - Muscular weakness [Unknown]
  - Hypothyroidism [Unknown]
  - Flatulence [Unknown]
  - Vomiting [Unknown]
  - Decreased appetite [Unknown]
  - Dysgeusia [Unknown]
  - Hepatitis [Unknown]
  - Skin reaction [Unknown]
  - Microalbuminuria [Unknown]
  - Nausea [Unknown]
  - Hepatic function abnormal [Not Recovered/Not Resolved]
  - Seizure [Unknown]
  - Bilirubin conjugated increased [Unknown]
  - Aspartate aminotransferase increased [Unknown]
  - Metastasis [Unknown]
  - Mucosal inflammation [Unknown]
  - Alopecia [Unknown]
  - Alanine aminotransferase increased [Unknown]
  - Malignant connective tissue neoplasm [Unknown]
  - Soft tissue sarcoma [Unknown]
  - Bone pain [Unknown]
  - Cough [Unknown]

NARRATIVE: CASE EVENT DATE: 20180525
